FAERS Safety Report 7599294-3 (Version None)
Quarter: 2011Q3

REPORT INFORMATION
  Report Type: 
  Country: None (occurrence: None)
  Receive Date: 20110711
  Receipt Date: 20110418
  Transmission Date: 20111222
  Serious: No
  Sender: FDA-Public Use
  Company Number: US-BAYER-2011-034338

PATIENT
  Age: 23 Year
  Sex: Female
  Weight: 63.5 kg

DRUGS (2)
  1. YAZ [Suspect]
     Indication: CONTRACEPTION
     Dosage: UNK
     Dates: start: 20080101
  2. LEVONORGESTREL [Concomitant]
     Indication: CONTRACEPTION
     Dosage: UNK
     Dates: start: 20110325, end: 20110326

REACTIONS (1)
  - MENSTRUATION DELAYED [None]
